FAERS Safety Report 6424869-4 (Version None)
Quarter: 2009Q4

REPORT INFORMATION
  Report Type: 
  Country: None (occurrence: None)
  Receive Date: 20091103
  Receipt Date: 20091022
  Transmission Date: 20100525
  Serious: Yes (Hospitalization)
  Sender: FDA-Public Use
  Company Number: BR-PFIZER INC-2009216589

PATIENT
  Sex: Female

DRUGS (2)
  1. UNASYN [Suspect]
     Indication: SINUSITIS
     Dosage: UNK
     Route: 048
     Dates: start: 20080501
  2. UNASYN [Suspect]
     Indication: PHARYNGITIS

REACTIONS (4)
  - DRUG INEFFECTIVE [None]
  - OROPHARYNGEAL PAIN [None]
  - PYREXIA [None]
  - WRONG TECHNIQUE IN DRUG USAGE PROCESS [None]
